FAERS Safety Report 6670640-8 (Version None)
Quarter: 2010Q2

REPORT INFORMATION
  Report Type: 
  Country: None (occurrence: None)
  Receive Date: 20100405
  Receipt Date: 20100324
  Transmission Date: 20101027
  Serious: Yes (Hospitalization, Disabling, Other)
  Sender: FDA-Public Use
  Company Number: 2009AC000046

PATIENT
  Age: 37 Year
  Sex: Male

DRUGS (62)
  1. DIGOXIN [Suspect]
     Dosage: 0.06 MG;QD;PO
     Route: 048
     Dates: start: 20061101
  2. DIGOXIN [Suspect]
     Dosage: 0.125 MG;PO
     Route: 048
     Dates: start: 20061101
  3. DIGOXIN [Suspect]
     Dosage: 0.25 MG;
     Dates: start: 19990701
  4. WARFARIN SODIUM [Concomitant]
  5. ATACAND [Concomitant]
  6. FERROUS SULFATE TAB [Concomitant]
  7. BISOPROLOL [Concomitant]
  8. ZINC [Concomitant]
  9. VITAMIN C [Concomitant]
  10. LASIX [Concomitant]
  11. INSPRA [Concomitant]
  12. AMIODARONE [Concomitant]
  13. PREVACID [Concomitant]
  14. TEMAZEPAM [Concomitant]
  15. AZMACORT [Concomitant]
  16. POTASSIUM [Concomitant]
  17. FLUTICASONE PROPIONATE [Concomitant]
  18. METOCLOPRAMIDE HYDROCHLORIDE [Concomitant]
  19. ZYRTEC [Concomitant]
  20. GENGRAF [Concomitant]
  21. CELLCEPT [Concomitant]
  22. ASPIRIN [Concomitant]
  23. CALTRATE [Concomitant]
  24. CARDIZEM [Concomitant]
  25. FLONASE [Concomitant]
  26. SYNTHROID [Concomitant]
  27. ALENDRONATE SODIUM [Concomitant]
  28. ZEBETA [Concomitant]
  29. METOLAZONE [Concomitant]
  30. COUMADIN [Concomitant]
  31. IRON SULFATETHIAMIN COMPOUND TAB [Concomitant]
  32. REGLAN [Concomitant]
  33. CANDESARTAN [Concomitant]
  34. PROVENTIL [Concomitant]
  35. NIZATIDINE [Concomitant]
  36. RU-TUSS [Concomitant]
  37. AZMACORT [Concomitant]
  38. AXID [Concomitant]
  39. PREVACID [Concomitant]
  40. FLUTICASONE PROPIONATE [Concomitant]
  41. COUMADIN [Concomitant]
  42. AMIODARONE [Concomitant]
  43. ATACAND [Concomitant]
  44. FERROUS SULFATE TAB [Concomitant]
  45. FLONAS [Concomitant]
  46. ISPRA [Concomitant]
  47. LASIX [Concomitant]
  48. METOLAZONE [Concomitant]
  49. PREVACID [Concomitant]
  50. REGIAN [Concomitant]
  51. SYNTHROID [Concomitant]
  52. ZEBETA [Concomitant]
  53. ZYRTEC [Concomitant]
  54. ATACAND [Concomitant]
  55. BISOPROLOL [Concomitant]
  56. ZINC [Concomitant]
  57. VITAMIN C [Concomitant]
  58. FERROUS SULFATE TAB [Concomitant]
  59. WARFARIN SODIUM [Concomitant]
  60. AMIODARONE HCL [Concomitant]
  61. GUAIFENESIN [Concomitant]
  62. DIGIBIND [Concomitant]

REACTIONS (39)
  - ANHEDONIA [None]
  - ANXIETY [None]
  - ARRHYTHMIA [None]
  - ASTHENIA [None]
  - ASTHMA [None]
  - BACK PAIN [None]
  - BENIGN COLONIC NEOPLASM [None]
  - BLOOD POTASSIUM DECREASED [None]
  - BRONCHOSCOPY ABNORMAL [None]
  - CARDIAC FAILURE [None]
  - CARDIAC FAILURE CONGESTIVE [None]
  - CARDIOMEGALY [None]
  - CARDIOMYOPATHY [None]
  - COUGH [None]
  - DEFORMITY [None]
  - DEVICE DISLOCATION [None]
  - DYSPNOEA [None]
  - DYSSTASIA [None]
  - ECONOMIC PROBLEM [None]
  - ERYTHEMA [None]
  - FAECAL INCONTINENCE [None]
  - GASTROOESOPHAGEAL REFLUX DISEASE [None]
  - GENERAL PHYSICAL CONDITION ABNORMAL [None]
  - HUNGER [None]
  - HYPOTHYROIDISM [None]
  - INJURY [None]
  - INSOMNIA [None]
  - IRRITABILITY [None]
  - LOSS OF CONSCIOUSNESS [None]
  - MITRAL VALVE INCOMPETENCE [None]
  - MULTIPLE ALLERGIES [None]
  - MUSCULAR DYSTROPHY [None]
  - MUSCULAR WEAKNESS [None]
  - PAIN [None]
  - SYNCOPE [None]
  - THERAPEUTIC AGENT TOXICITY [None]
  - THYROID DISORDER [None]
  - UNEMPLOYMENT [None]
  - VENTRICULAR TACHYCARDIA [None]
